FAERS Safety Report 12146823 (Version 1)
Quarter: 2016Q1

REPORT INFORMATION
  Report Type: Spontaneous
  Country: US (occurrence: US)
  Receive Date: 20160304
  Receipt Date: 20160304
  Transmission Date: 20160526
  Serious: Yes (Other)
  Sender: FDA-Public Use
  Company Number: US-ASTRAZENECA-2016SE21321

PATIENT
  Age: 2 Month
  Sex: Female
  Weight: 7.7 kg

DRUGS (1)
  1. NEXIUM [Suspect]
     Active Substance: ESOMEPRAZOLE MAGNESIUM
     Indication: GASTROOESOPHAGEAL REFLUX DISEASE
     Route: 048
     Dates: start: 201508

REACTIONS (8)
  - Fall [Unknown]
  - Femur fracture [Unknown]
  - Intentional product misuse [Unknown]
  - Crying [Unknown]
  - Intentional product use issue [Unknown]
  - Off label use [Unknown]
  - Salivary hypersecretion [Unknown]
  - Drug administered to patient of inappropriate age [Unknown]

NARRATIVE: CASE EVENT DATE: 201508
